FAERS Safety Report 20827263 (Version 1)
Quarter: 2022Q2

REPORT INFORMATION
  Report Type: Report from Study
  Country: PL (occurrence: PL)
  Receive Date: 20220513
  Receipt Date: 20220513
  Transmission Date: 20220720
  Serious: Yes (Other)
  Sender: FDA-Public Use
  Company Number: PL-PFIZER INC-202100993499

PATIENT
  Age: 46 Year
  Sex: Male
  Weight: 83 kg

DRUGS (5)
  1. ABROCITINIB [Suspect]
     Active Substance: ABROCITINIB
     Indication: Dermatitis atopic
     Dosage: 100 MG, 1X/DAY
     Route: 048
     Dates: start: 20181127, end: 20210802
  2. LIRRA [Concomitant]
     Indication: Dermatitis atopic
     Dosage: 5 MG, 1X/DAY
     Route: 048
     Dates: start: 20190218
  3. FOSTEX [BECLOMETASONE DIPROPIONATE;FORMOTEROL FUMARATE] [Concomitant]
     Indication: Asthma
     Dosage: [BECLOMETASONE DIPROPIONATE 200 UG]/[FORMOTEROL FUMARATE 6 UG] RESPIRATORY (INHALATION), AS NEEDED
     Route: 055
     Dates: start: 20190218
  4. HYALURONIC ACID [Concomitant]
     Active Substance: HYALURONIC ACID
     Indication: Conjunctivitis
     Dosage: 2 GTT, AS NEEDED
     Route: 047
     Dates: start: 20190601
  5. AMLODIPINE BESYLATE\INDAPAMIDE\PERINDOPRIL ARGININE [Concomitant]
     Active Substance: AMLODIPINE BESYLATE\INDAPAMIDE\PERINDOPRIL ARGININE
     Indication: Hypertension
     Dosage: [AMLODIPINE BESILATE 5 MG]/[INDAPAMIDE 1.25 MG]/[PERINDOPRIL ARGININE 10 MG], 1X/DAY
     Route: 048
     Dates: start: 20190514, end: 20210721

REACTIONS (1)
  - Squamous cell carcinoma of skin [Recovered/Resolved]

NARRATIVE: CASE EVENT DATE: 20210624
